FAERS Safety Report 4397310-3 (Version None)
Quarter: 2004Q3

REPORT INFORMATION
  Report Type: 
  Country: None (occurrence: None)
  Receive Date: 20040714
  Receipt Date: 20040525
  Transmission Date: 20050211
  Serious: Yes (Congenital Anomaly)
  Sender: FDA-Public Use
  Company Number: US-GLAXOSMITHKLINE-A0512663A

PATIENT
  Sex: Male

DRUGS (2)
  1. COMBIVIR [Suspect]
     Indication: HIV INFECTION
     Dosage: 1TAB TWICE PER DAY
     Route: 048
     Dates: start: 20030401
  2. ATAZANAVIR [Concomitant]
     Indication: HIV INFECTION
     Dates: start: 20030724

REACTIONS (13)
  - ABORTION INDUCED [None]
  - BOWEL SOUNDS ABNORMAL [None]
  - CONGENITAL ATRIAL SEPTAL DEFECT [None]
  - DILATATION ATRIAL [None]
  - DRUG EXPOSURE DURING PREGNANCY [None]
  - FOETAL DISORDER [None]
  - FOETAL GROWTH RETARDATION [None]
  - GASTROINTESTINAL DISORDER [None]
  - HEART DISEASE CONGENITAL [None]
  - MUSCULOSKELETAL DISORDER [None]
  - PLACENTAL DISORDER [None]
  - ULTRASOUND SCAN ABNORMAL [None]
  - VENTRICULAR HYPERTROPHY [None]
